FAERS Safety Report 7556504-6 (Version None)
Quarter: 2011Q2

REPORT INFORMATION
  Report Type: 
  Country: None (occurrence: None)
  Receive Date: 20110620
  Receipt Date: 20110606
  Transmission Date: 20111010
  Serious: Yes (Hospitalization)
  Sender: FDA-Public Use
  Company Number: US-JNJFOC-20110104197

PATIENT
  Sex: Male
  Weight: 29.8 kg

DRUGS (9)
  1. REMICADE [Suspect]
     Route: 042
     Dates: start: 20080117
  2. REMICADE [Suspect]
     Indication: CROHN'S DISEASE
     Route: 042
     Dates: start: 20080902, end: 20081010
  3. PROBIOTICS [Concomitant]
     Route: 065
  4. AZATHIOPRINE [Concomitant]
     Route: 065
  5. PREDNISONE [Concomitant]
  6. ANTIBIOTICS [Concomitant]
     Indication: INFLAMMATORY BOWEL DISEASE
     Route: 065
  7. REMICADE [Suspect]
     Route: 042
     Dates: start: 20080117
  8. REMICADE [Suspect]
     Indication: INFLAMMATORY BOWEL DISEASE
     Route: 042
     Dates: start: 20080902, end: 20081010
  9. HUMIRA [Concomitant]
     Dates: start: 20081118

REACTIONS (1)
  - CROHN'S DISEASE [None]
